FAERS Safety Report 9167685 (Version 1)
Quarter: 2013Q1

REPORT INFORMATION
  Report Type: Spontaneous
  Country: US (occurrence: None)
  Receive Date: 20130304
  Receipt Date: 20130304
  Transmission Date: 20140127
  Serious: No
  Sender: FDA-Public Use
  Company Number: 7195743

PATIENT
  Age: 50 Year
  Sex: Male

DRUGS (5)
  1. LEVOTHYROXINE [Suspect]
     Indication: HYPOTHYROIDISM
  2. CALCIUM CITRATE (CALCIUM CITRATE) [Concomitant]
  3. ASPIRIN (ACETYLSALICYLIC ACID) [Concomitant]
  4. SIMVASTATIN (SIMVASTATIN) [Concomitant]
  5. HYDROXYVITAMIN D (EROCALCIFEROL) [Concomitant]

REACTIONS (7)
  - Renal infarct [None]
  - Renal embolism [None]
  - Endocarditis staphylococcal [None]
  - Staphylococcal bacteraemia [None]
  - Blood pressure systolic increased [None]
  - Left ventricular hypertrophy [None]
  - Cholelithiasis [None]
